FAERS Safety Report 25940098 (Version 2)
Quarter: 2025Q4

REPORT INFORMATION
  Report Type: Spontaneous
  Country: JP (occurrence: JP)
  Receive Date: 20251020
  Receipt Date: 20251111
  Transmission Date: 20260118
  Serious: Yes (Other)
  Sender: ROCHE
  Company Number: JP-CHUGAI-2025032750AA

PATIENT
  Age: 70 Year
  Sex: Female
  Weight: 45 kg

DRUGS (7)
  1. ACTEMRA [Suspect]
     Active Substance: TOCILIZUMAB
     Indication: Polymyalgia rheumatica
     Dosage: UNK
     Route: 042
     Dates: start: 20190730
  2. ACTEMRA [Suspect]
     Active Substance: TOCILIZUMAB
     Dosage: UNK
     Route: 042
     Dates: start: 202009
  3. ACTEMRA [Suspect]
     Active Substance: TOCILIZUMAB
     Dosage: UNK,  ONCE/6WEEKS
     Route: 042
     Dates: start: 202104
  4. ACTEMRA [Suspect]
     Active Substance: TOCILIZUMAB
     Dosage: UNK,  ONCE/2MONTHS
     Route: 042
     Dates: start: 202303
  5. ACTEMRA [Suspect]
     Active Substance: TOCILIZUMAB
     Dosage: UNK,  ONCE/7WEEKS
     Route: 042
     Dates: start: 202306, end: 202409
  6. ELDECALCITOL [Suspect]
     Active Substance: ELDECALCITOL
     Indication: Product used for unknown indication
     Dosage: UNK, STRENGTH 75 UG
     Route: 048
  7. AMLODIPINE BESYLATE [Concomitant]
     Active Substance: AMLODIPINE BESYLATE
     Route: 048
     Dates: start: 20240109, end: 20240525

REACTIONS (10)
  - Cardiac valve disease [Recovering/Resolving]
  - Photosensitivity reaction [Unknown]
  - Alopecia areata [Recovering/Resolving]
  - Glossitis [Recovering/Resolving]
  - Off label use [Unknown]
  - Chest discomfort [Unknown]
  - Erythema [Recovering/Resolving]
  - Abdominal pain upper [Unknown]
  - Eczema [Unknown]
  - Pruritus [Recovered/Resolved]

NARRATIVE: CASE EVENT DATE: 20190901
